FAERS Safety Report 15318620 (Version 1)
Quarter: 2018Q3

REPORT INFORMATION
  Report Type: Spontaneous
  Country: US (occurrence: US)
  Receive Date: 20180817
  Receipt Date: 20180817
  Transmission Date: 20181010
  Serious: No
  Sender: FDA-Public Use
  Company Number: None

PATIENT
  Age: 79 Year
  Sex: Female

DRUGS (1)
  1. IBRANCE [Suspect]
     Active Substance: PALBOCICLIB
     Indication: BREAST CANCER FEMALE
     Route: 048
     Dates: start: 20180702

REACTIONS (4)
  - Lacrimation increased [None]
  - Eye pruritus [None]
  - Dry eye [None]
  - Pruritus [None]

NARRATIVE: CASE EVENT DATE: 20180801
